FAERS Safety Report 20936050 (Version 1)
Quarter: 2022Q2

REPORT INFORMATION
  Report Type: Spontaneous
  Country: US (occurrence: US)
  Receive Date: 20220609
  Receipt Date: 20220609
  Transmission Date: 20220721
  Serious: Yes (Hospitalization, Other)
  Sender: FDA-Public Use
  Company Number: US-MACLEODS PHARMACEUTICALS US LTD-MAC2022035911

PATIENT

DRUGS (7)
  1. OLANZAPINE [Suspect]
     Active Substance: OLANZAPINE
     Indication: Schizophrenia
     Dosage: 5 MILLIGRAM, QD ((EVERY 24 HOURS)
     Route: 065
  2. OLANZAPINE [Suspect]
     Active Substance: OLANZAPINE
     Dosage: 15 MILLIGRAM, QD ((EVERY 24 HOURS)
     Route: 065
  3. OLANZAPINE [Suspect]
     Active Substance: OLANZAPINE
     Dosage: 20 MILLIGRAM, QD ((EVERY 24 HOURS) (RISPERIDONE WAS CROSS-TITRATED TO OLANZAPINE 20 MG/DAY IN DIVIDE
     Route: 065
  4. RISPERIDONE [Suspect]
     Active Substance: RISPERIDONE
     Indication: Hostility
     Dosage: 6 MILLIGRAM, QD (EVERY 24 HOUR), 6 MG/DAY IN DIVIDED DOSING OVER 9 DAYS
     Route: 065
  5. RISPERIDONE [Suspect]
     Active Substance: RISPERIDONE
     Indication: Aggression
     Dosage: 2 MILLIGRAM, QD (EVERY 24 HOUR), 2 MG AT BEDTIME
     Route: 048
  6. DIVALPROEX SODIUM [Suspect]
     Active Substance: DIVALPROEX SODIUM
     Indication: Hostility
     Dosage: 250 MILLIGRAM, QD (EVERY 24 HOURS) , HIS EVENING DOSE OF DVP WAS TAPERED TO 250 MG
     Route: 065
  7. DIVALPROEX SODIUM [Suspect]
     Active Substance: DIVALPROEX SODIUM
     Indication: Aggression
     Dosage: 500 MILLIGRAM, BID (EVERY 12 HOUR)
     Route: 065

REACTIONS (2)
  - Condition aggravated [Recovered/Resolved]
  - Neutropenia [Recovered/Resolved]
